FAERS Safety Report 7973654-0 (Version None)
Quarter: 2011Q4

REPORT INFORMATION
  Report Type: 
  Country: None (occurrence: None)
  Receive Date: 20111209
  Receipt Date: 20111130
  Transmission Date: 20120403
  Serious: Yes (Other)
  Sender: FDA-Public Use
  Company Number: CIP11003234

PATIENT
  Age: 81 Year
  Sex: Female
  Weight: 90 kg

DRUGS (7)
  1. ACTONEL [Suspect]
     Indication: OSTEOPOROSIS
     Dosage: 150 MG, ORAL
     Route: 048
     Dates: start: 20110101
  2. OMEPRAZOLE [Concomitant]
  3. SYNTHROID [Concomitant]
  4. ANTI INFLAMMATORY (DICLOFENAC DIETHYLAMINE) [Concomitant]
  5. VASOGARD (CILOSTAZOL) [Concomitant]
  6. ACTONEL [Suspect]
     Indication: OSTEOPOROSIS
     Dosage: 35 MG ONCE WEEKLY, ORAL
     Route: 048
     Dates: start: 20060101, end: 20110101
  7. APROZIDE HYDROCHLOROTHIAZIDE, IRBESARTAN) [Concomitant]

REACTIONS (3)
  - MEMORY IMPAIRMENT [None]
  - CONDITION AGGRAVATED [None]
  - DEMENTIA ALZHEIMER'S TYPE [None]
